FAERS Safety Report 8901220 (Version 1)
Quarter: 2012Q4

REPORT INFORMATION
  Report Type: 
  Country: US (occurrence: US)
  Receive Date: 20121109
  Receipt Date: 20121109
  Transmission Date: 20130627
  Serious: No
  Sender: FDA-Public Use
  Company Number: US-PFIZER INC-2012278957

PATIENT
  Sex: Female

DRUGS (2)
  1. PRISTIQ [Suspect]
     Dosage: 50 mg, UNK
  2. PRISTIQ [Suspect]
     Dosage: 25 mg, UNK

REACTIONS (5)
  - Alopecia [Recovered/Resolved]
  - Lacrimation increased [Recovered/Resolved]
  - Crying [Recovered/Resolved]
  - Mood swings [Recovered/Resolved]
  - Paraesthesia [Recovered/Resolved]
